FAERS Safety Report 25076204 (Version 1)
Quarter: 2025Q1

REPORT INFORMATION
  Report Type: Spontaneous
  Country: US (occurrence: None)
  Receive Date: 20250313
  Receipt Date: 20250313
  Transmission Date: 20250408
  Serious: Yes (Life-Threatening, Hospitalization, Disabling, Other)
  Sender: FDA-CTU
  Company Number: None

PATIENT
  Age: 80 Year
  Sex: Female
  Weight: 56.25 kg

DRUGS (23)
  1. RIVASTIGMINE [Suspect]
     Active Substance: RIVASTIGMINE
     Indication: Amnesia
     Dosage: OTHER QUANTITY : 1 CAPSULE(S);?FREQUENCY : TWICE A DAY;?
     Route: 048
     Dates: start: 20241209, end: 20250106
  2. XOSPATA [Concomitant]
     Active Substance: GILTERITINIB
  3. VENCLEXTA [Concomitant]
     Active Substance: VENETOCLAX
  4. UNSPECIFIED INGREDIENT [Concomitant]
     Active Substance: UNSPECIFIED INGREDIENT
  5. FAMCICLOVIR [Concomitant]
     Active Substance: FAMCICLOVIR
  6. SULFAMETHOXAZOLE [Concomitant]
     Active Substance: SULFAMETHOXAZOLE
  7. ALLOPURINOL [Concomitant]
     Active Substance: ALLOPURINOL
  8. ELIQUIS [Concomitant]
     Active Substance: APIXABAN
  9. LANTUS SOLOSTAR [Concomitant]
     Active Substance: INSULIN GLARGINE
  10. PANTOPRAZOLE [Concomitant]
     Active Substance: PANTOPRAZOLE
  11. POLYETHYLENE GLYCOL [Concomitant]
     Active Substance: POLYETHYLENE GLYCOL
  12. DOCUSATE SODIUM\SENNOSIDES [Concomitant]
     Active Substance: DOCUSATE SODIUM\SENNOSIDES
  13. VORICONAZOLE [Concomitant]
     Active Substance: VORICONAZOLE
  14. ALENDRONATE [Concomitant]
     Active Substance: ALENDRONATE SODIUM
  15. AMLODIPINE [Concomitant]
     Active Substance: AMLODIPINE BESYLATE
  16. LUMIGAN [Concomitant]
     Active Substance: BIMATOPROST
  17. RESTASIS [Concomitant]
     Active Substance: CYCLOSPORINE
  18. SULFASALAZINE [Concomitant]
     Active Substance: SULFASALAZINE
  19. vancepa [Concomitant]
  20. VITAMINS [Concomitant]
     Active Substance: VITAMINS
  21. teas [Concomitant]
  22. ESSENTIAL OILS [Concomitant]
     Active Substance: ESSENTIAL OILS
  23. arti king [Concomitant]

REACTIONS (10)
  - Decreased appetite [None]
  - Dizziness [None]
  - Tremor [None]
  - Heart rate irregular [None]
  - Fatigue [None]
  - Dysstasia [None]
  - Leukaemia [None]
  - Platelet count decreased [None]
  - Anaemia [None]
  - Diabetes mellitus [None]

NARRATIVE: CASE EVENT DATE: 20250106
